FAERS Safety Report 7740541-2 (Version None)
Quarter: 2011Q3

REPORT INFORMATION
  Report Type: 
  Country: None (occurrence: None)
  Receive Date: 20110909
  Receipt Date: 20110907
  Transmission Date: 20111222
  Serious: Yes (Death, Life-Threatening, Other)
  Sender: FDA-Public Use
  Company Number: FR-ABBOTT-11P-056-0851904-00

PATIENT
  Sex: Female

DRUGS (7)
  1. MEPROBAMATE [Suspect]
     Indication: PRODUCT USED FOR UNKNOWN INDICATION
     Route: 048
     Dates: start: 20110829, end: 20110829
  2. ATARAX [Suspect]
     Indication: PRODUCT USED FOR UNKNOWN INDICATION
     Route: 048
     Dates: start: 20110829, end: 20110829
  3. BROMAZEPAM [Suspect]
     Indication: PRODUCT USED FOR UNKNOWN INDICATION
     Route: 048
     Dates: start: 20110829, end: 20110829
  4. NOCTAMIDE [Concomitant]
     Indication: PRODUCT USED FOR UNKNOWN INDICATION
  5. HUMIRA [Suspect]
     Indication: RHEUMATOID ARTHRITIS
     Route: 058
     Dates: start: 20050101
  6. ATENOLOL [Suspect]
     Indication: PRODUCT USED FOR UNKNOWN INDICATION
     Route: 048
     Dates: start: 20110829, end: 20110829
  7. ESCITALOPRAM OXALATE [Concomitant]
     Indication: PRODUCT USED FOR UNKNOWN INDICATION

REACTIONS (27)
  - MIOSIS [None]
  - COUGH [None]
  - VERTEBRAL ARTERY THROMBOSIS [None]
  - APNOEA [None]
  - CELL DEATH [None]
  - CIRCULATORY COLLAPSE [None]
  - MYDRIASIS [None]
  - CEREBRAL ISCHAEMIA [None]
  - PUPIL FIXED [None]
  - AREFLEXIA [None]
  - LABILE BLOOD PRESSURE [None]
  - PARADOXICAL EMBOLISM [None]
  - ATRIAL SEPTAL DEFECT [None]
  - BRAIN DEATH [None]
  - HYPOTENSION [None]
  - CARDIOVASCULAR DISORDER [None]
  - TOXICITY TO VARIOUS AGENTS [None]
  - BRADYPNOEA [None]
  - COMA [None]
  - OXYGEN SATURATION DECREASED [None]
  - OVERDOSE [None]
  - COMA SCALE ABNORMAL [None]
  - CEREBRAL HYPOPERFUSION [None]
  - ISCHAEMIC STROKE [None]
  - RESPIRATORY DISTRESS [None]
  - CAROTID ARTERY THROMBOSIS [None]
  - INTRACRANIAL PRESSURE INCREASED [None]
